FAERS Safety Report 6897185-4 (Version None)
Quarter: 2010Q3

REPORT INFORMATION
  Report Type: 
  Country: None (occurrence: None)
  Receive Date: 20100802
  Receipt Date: 20070322
  Transmission Date: 20110219
  Serious: No
  Sender: FDA-Public Use
  Company Number: US-PFIZER INC-2007024186

PATIENT
  Sex: Female
  Weight: 65.8 kg

DRUGS (11)
  1. LYRICA [Suspect]
     Indication: SCIATICA
     Dates: start: 20070301
  2. LASIX [Concomitant]
  3. ALTACE [Concomitant]
  4. WARFARIN SODIUM [Concomitant]
  5. LANOXIN [Concomitant]
  6. LIDOCAINE HYDROCHLORIDE [Concomitant]
  7. POTASSIUM [Concomitant]
  8. PREMARIN [Concomitant]
  9. SYNTHROID [Concomitant]
  10. TOPROL-XL [Concomitant]
  11. ALL OTHER THERAPEUTIC PRODUCTS [Concomitant]

REACTIONS (3)
  - BODY HEIGHT DECREASED [None]
  - OEDEMA PERIPHERAL [None]
  - SOMNOLENCE [None]
